FAERS Safety Report 12888044 (Version 2)
Quarter: 2016Q4

REPORT INFORMATION
  Report Type: Spontaneous
  Country: RU (occurrence: RU)
  Receive Date: 20161027
  Receipt Date: 20161114
  Transmission Date: 20170207
  Serious: Yes (Life-Threatening, Hospitalization, Other)
  Sender: FDA-Public Use
  Company Number: RU-ROCHE-1845416

PATIENT
  Age: 10 Year
  Sex: Male

DRUGS (5)
  1. VENTOLIN [Concomitant]
     Active Substance: ALBUTEROL SULFATE
     Indication: PRODUCT USED FOR UNKNOWN INDICATION
     Route: 065
  2. PULMICORT TURBUHALER [Concomitant]
     Active Substance: BUDESONIDE
     Indication: ASTHMA
     Route: 065
  3. XOLAIR [Suspect]
     Active Substance: OMALIZUMAB
     Indication: ASTHMA
     Dosage: UNK
     Route: 065
     Dates: start: 201603, end: 201606
  4. SINGULAIR [Concomitant]
     Active Substance: MONTELUKAST SODIUM
     Indication: PRODUCT USED FOR UNKNOWN INDICATION
     Route: 065
  5. SYMBICORT [Concomitant]
     Active Substance: BUDESONIDE\FORMOTEROL FUMARATE DIHYDRATE
     Indication: ASTHMA
     Route: 065

REACTIONS (17)
  - Ischaemic stroke [Unknown]
  - Asthenia [Recovered/Resolved with Sequelae]
  - Facial paresis [Unknown]
  - Tongue paralysis [Unknown]
  - Blood calcium decreased [Unknown]
  - Hypotonia [Unknown]
  - Monocyte count increased [Unknown]
  - Hypermetropia [Unknown]
  - Trigeminal nerve paresis [Unknown]
  - Anisometropia [Unknown]
  - Heart rate increased [Unknown]
  - Congenital arterial malformation [Unknown]
  - Hypertension [Recovered/Resolved with Sequelae]
  - Eosinophil count increased [Unknown]
  - Vertigo [Recovered/Resolved with Sequelae]
  - Vomiting [Recovered/Resolved with Sequelae]
  - Scoliosis [Unknown]

NARRATIVE: CASE EVENT DATE: 20160629
